FAERS Safety Report 5297543-8 (Version None)
Quarter: 2007Q2

REPORT INFORMATION
  Report Type: 
  Country: None (occurrence: None)
  Receive Date: 20070416
  Receipt Date: 20070402
  Transmission Date: 20071010
  Serious: Yes (Other)
  Sender: FDA-Public Use
  Company Number: PHEH2007US03858

PATIENT
  Age: 78 Year
  Sex: Female

DRUGS (2)
  1. ATENOLOL [Concomitant]
  2. ZELNORM [Suspect]
     Indication: GASTROOESOPHAGEAL REFLUX DISEASE
     Dosage: 6 MG, BID
     Dates: start: 20050801

REACTIONS (1)
  - ARRHYTHMIA [None]
